FAERS Safety Report 10145043 (Version 1)
Quarter: 2014Q2

REPORT INFORMATION
  Report Type: Spontaneous
  Country: US (occurrence: US)
  Receive Date: 20140501
  Receipt Date: 20140501
  Transmission Date: 20141212
  Serious: Yes (Hospitalization)
  Sender: FDA-Public Use
  Company Number: US-ABBVIE-14P-163-1230284-00

PATIENT
  Sex: Male
  Weight: 72.64 kg

DRUGS (25)
  1. ANDROGEL STICK PACK 2.5G [Suspect]
     Indication: BLOOD TESTOSTERONE DECREASED
     Dosage: 1 PACKET
     Route: 061
     Dates: start: 2012
  2. NUVIGIL [Concomitant]
     Indication: ASTHENIA
  3. ASPIRIN [Concomitant]
     Indication: CARDIAC DISORDER
  4. LIPITOR [Concomitant]
     Indication: BLOOD CHOLESTEROL INCREASED
  5. ZETIA [Concomitant]
     Indication: BLOOD CHOLESTEROL INCREASED
  6. KLONOPIN [Concomitant]
     Indication: ANXIETY
  7. ANUSOL HC [Concomitant]
     Indication: HAEMORRHOIDS
  8. AVODART [Concomitant]
     Indication: PROSTATOMEGALY
  9. B 12 [Concomitant]
     Indication: PRODUCT USED FOR UNKNOWN INDICATION
  10. DEPLIN [Concomitant]
     Indication: DEPRESSION
  11. ERGO [Concomitant]
     Indication: VITAMIN SUPPLEMENTATION
  12. FISH OIL [Concomitant]
     Indication: VITAMIN SUPPLEMENTATION
  13. LASIX [Concomitant]
     Indication: FLUID RETENTION
  14. LEVEMIR [Concomitant]
     Indication: TYPE 2 DIABETES MELLITUS
  15. LEXAPRO [Concomitant]
     Indication: DEPRESSION
  16. NASACORT AQ [Concomitant]
     Indication: HYPERSENSITIVITY
  17. SALINE [Concomitant]
     Indication: HYPERSENSITIVITY
     Dosage: NASAL SPRAY
  18. NITROSTAT [Concomitant]
     Indication: CHEST PAIN
  19. NORVASC [Concomitant]
     Indication: HYPERTENSION
  20. OXYCONTIN [Concomitant]
     Indication: BACK PAIN
  21. OXYCONTIN [Concomitant]
     Indication: NECK PAIN
  22. RANEXA [Concomitant]
     Indication: CHEST PAIN
  23. SPIRONOLACTONE [Concomitant]
     Indication: PRODUCT USED FOR UNKNOWN INDICATION
  24. SYNTHROID [Concomitant]
     Indication: HYPOTHYROIDISM
  25. TRIMETHYLGLYCINE [Concomitant]
     Indication: VITAMIN SUPPLEMENTATION

REACTIONS (2)
  - Myocardial infarction [Recovered/Resolved]
  - Asthenia [Not Recovered/Not Resolved]
